FAERS Safety Report 6299769-3 (Version None)
Quarter: 2009Q3

REPORT INFORMATION
  Report Type: 
  Country: None (occurrence: None)
  Receive Date: 20090804
  Receipt Date: 20090720
  Transmission Date: 20100115
  Serious: Yes (Hospitalization, Disabling)
  Sender: FDA-Public Use
  Company Number: A-NJ2009-26467

PATIENT
  Age: 79 Year
  Sex: Female
  Weight: 50.8 kg

DRUGS (4)
  1. VENTAVIS [Suspect]
     Indication: PULMONARY HYPERTENSION
     Dosage: 5 UG, 6 TO 9 X DAILY, RESPIRATORY, 2.5 UG, RESPIRATORY
     Route: 055
     Dates: start: 20090301, end: 20090301
  2. VENTAVIS [Suspect]
     Indication: PULMONARY HYPERTENSION
     Dosage: 5 UG, 6 TO 9 X DAILY, RESPIRATORY, 2.5 UG, RESPIRATORY
     Route: 055
     Dates: start: 20090301, end: 20090325
  3. AMBRISENTAN (AMBRISENTAN) [Concomitant]
  4. REVATIO [Concomitant]

REACTIONS (4)
  - ATRIAL FIBRILLATION [None]
  - EXERCISE TOLERANCE DECREASED [None]
  - HYPOTENSION [None]
  - SUPRAVENTRICULAR TACHYCARDIA [None]
